FAERS Safety Report 5622709-4 (Version None)
Quarter: 2008Q1

REPORT INFORMATION
  Report Type: 
  Country: None (occurrence: None)
  Receive Date: 20080212
  Receipt Date: 20080126
  Transmission Date: 20080703
  Serious: Yes (Other)
  Sender: FDA-Public Use
  Company Number: US-JNJFOC-20080202006

PATIENT
  Age: 25 Year
  Sex: Female

DRUGS (2)
  1. EXTRA STRENGTH TYLENOL [Suspect]
     Indication: INSOMNIA
     Route: 048
  2. EXTRA STRENGTH TYLENOL [Suspect]
     Indication: ARTHRALGIA
     Route: 048

REACTIONS (5)
  - BLADDER DISORDER [None]
  - DIZZINESS [None]
  - NEUROGENIC BLADDER [None]
  - PALLOR [None]
  - PRESYNCOPE [None]
